FAERS Safety Report 9623153 (Version 4)
Quarter: 2014Q1

REPORT INFORMATION
  Report Type: Spontaneous
  Country: US (occurrence: None)
  Receive Date: 20131010
  Receipt Date: 20140211
  Transmission Date: 20141002
  Serious: Yes (Hospitalization)
  Sender: FDA-Public Use
  Company Number: 2013MPI00574

PATIENT
  Age: 57 Year
  Sex: Male
  Weight: 92.9 kg

DRUGS (11)
  1. BRENTUXIMAB VEDOTIN [Suspect]
     Indication: HODGKIN^S DISEASE
     Route: 042
     Dates: start: 20130903, end: 20130917
  2. VINBLASTINE [Suspect]
     Indication: HODGKIN^S DISEASE
     Route: 042
     Dates: start: 20130903, end: 20130917
  3. DOXORUBICIN [Suspect]
     Indication: HODGKIN^S DISEASE
     Route: 042
     Dates: start: 20130903, end: 20130917
  4. DACARBAZINE [Suspect]
     Indication: HODGKIN^S DISEASE
     Route: 042
     Dates: start: 20130903, end: 20130917
  5. BACLOFEN  (BACLOFEN) [Concomitant]
  6. THORAZINE (CHLORPROMAZINE HYDROCHLORIDE) [Concomitant]
  7. PRILOSEC [Concomitant]
  8. SENNOSIDES A+B (SENNOSIDES A+B) [Concomitant]
  9. ROXICODONE (OXYCODONE HYDROCHLORIDE) [Concomitant]
  10. ATIVAN (LORAZEPAM) [Concomitant]
  11. COMPAZINE (PROCHLORPERAZINE MALEATE) [Concomitant]

REACTIONS (23)
  - Febrile neutropenia [None]
  - Hiccups [None]
  - Insomnia [None]
  - Fatigue [None]
  - Dizziness [None]
  - Syncope [None]
  - Blood sodium decreased [None]
  - Lethargy [None]
  - Balance disorder [None]
  - Chills [None]
  - Myalgia [None]
  - Decreased appetite [None]
  - Nausea [None]
  - Haematemesis [None]
  - Pain in extremity [None]
  - Oropharyngeal pain [None]
  - Oral pain [None]
  - Pyrexia [None]
  - Tachycardia [None]
  - Pharyngeal inflammation [None]
  - Systemic inflammatory response syndrome [None]
  - Deep vein thrombosis [None]
  - Pulmonary embolism [None]
